FAERS Safety Report 5821996-7 (Version None)
Quarter: 2008Q3

REPORT INFORMATION
  Report Type: 
  Country: None (occurrence: None)
  Receive Date: 20080724
  Receipt Date: 20080715
  Transmission Date: 20090109
  Serious: Yes (Other)
  Sender: FDA-Public Use
  Company Number: US-MERCK-0807USA02717

PATIENT
  Age: 42 Year
  Sex: Female
  Weight: 86 kg

DRUGS (5)
  1. PRINIVIL [Suspect]
     Route: 048
     Dates: end: 20070110
  2. ENBREL [Suspect]
     Indication: PSORIASIS
     Route: 058
     Dates: start: 20040615, end: 20061201
  3. ALDOMET [Suspect]
     Route: 048
  4. FLUOXETINE [Concomitant]
     Route: 065
     Dates: end: 20070115
  5. CLOBETASOL PROPIONATE [Concomitant]
     Route: 061
     Dates: start: 20060901

REACTIONS (2)
  - ABORTION SPONTANEOUS [None]
  - DRUG EXPOSURE DURING PREGNANCY [None]
